FAERS Safety Report 14274791 (Version 4)
Quarter: 2018Q1

REPORT INFORMATION
  Report Type: Report from Study
  Country: AT (occurrence: AT)
  Receive Date: 20171212
  Receipt Date: 20180327
  Transmission Date: 20180508
  Serious: Yes (Other)
  Sender: FDA-Public Use
  Company Number: AT-PFIZER INC-2017522192

PATIENT
  Age: 44 Year
  Sex: Female
  Weight: 48 kg

DRUGS (27)
  1. GEMCITABINE HYDROCHLORIDE. [Suspect]
     Active Substance: GEMCITABINE HYDROCHLORIDE
     Indication: PANCREATIC CARCINOMA
     Dosage: 1494 MG/M2, UNK
     Dates: start: 20170323, end: 20170620
  2. GEMCITABINE HYDROCHLORIDE. [Suspect]
     Active Substance: GEMCITABINE HYDROCHLORIDE
     Dosage: 1536 MG/M2, UNK
     Dates: start: 20170420
  3. MOVICOL [Suspect]
     Active Substance: POLYETHYLENE GLYCOL 3350\POTASSIUM CHLORIDE\SODIUM BICARBONATE\SODIUM CHLORIDE
     Dosage: UNK
  4. LOVENOX [Concomitant]
     Active Substance: ENOXAPARIN SODIUM
     Dosage: 80 MG, UNK
     Dates: start: 20170420, end: 20170508
  5. XANAX [Concomitant]
     Active Substance: ALPRAZOLAM
     Dosage: 0.5 MG, UNK
     Route: 065
  6. PANTOLOC [Concomitant]
     Active Substance: PANTOPRAZOLE SODIUM
     Dosage: 40 MG, 1X/DAY
     Route: 065
  7. ZOFRAN [Concomitant]
     Active Substance: ONDANSETRON HYDROCHLORIDE
     Dosage: UNK, 1X/DAY
     Route: 065
  8. TRITTICO [Concomitant]
     Active Substance: TRAZODONE HYDROCHLORIDE
     Dosage: 150 MG, 1X/DAY
     Route: 065
  9. ABRAXANE [Suspect]
     Active Substance: PACLITAXEL
     Dosage: 151 MG/M2, UNK
     Route: 041
     Dates: start: 20170323
  10. LOVENOX [Concomitant]
     Active Substance: ENOXAPARIN SODIUM
     Dosage: 60 MG, UNK
     Dates: start: 20170509
  11. GEMCITABINE HYDROCHLORIDE. [Suspect]
     Active Substance: GEMCITABINE HYDROCHLORIDE
     Dosage: 1491 MG/M2, UNK
     Dates: start: 20170420
  12. GEMCITABINE HYDROCHLORIDE. [Suspect]
     Active Substance: GEMCITABINE HYDROCHLORIDE
     Dosage: 1211 MG/M2, UNK
     Dates: start: 20170523
  13. ABRAXANE [Suspect]
     Active Substance: PACLITAXEL
     Dosage: 189 MG/M2, UNK
     Route: 041
     Dates: start: 20170420
  14. GEMCITABINE HYDROCHLORIDE. [Suspect]
     Active Substance: GEMCITABINE HYDROCHLORIDE
     Dosage: 1199 MG/M2, UNK
     Dates: start: 20170523
  15. GEMCITABINE HYDROCHLORIDE. [Suspect]
     Active Substance: GEMCITABINE HYDROCHLORIDE
     Dosage: 1226 MG/M2, UNK
     Dates: start: 20170523
  16. ABRAXANE [Suspect]
     Active Substance: PACLITAXEL
     Dosage: 191 MG/M2, UNK
     Route: 041
     Dates: start: 20170323, end: 20170620
  17. CONCOR [Concomitant]
     Active Substance: BISOPROLOL FUMARATE
     Dosage: 5 MG, UNK
     Route: 065
  18. GEMCITABINE HYDROCHLORIDE. [Suspect]
     Active Substance: GEMCITABINE HYDROCHLORIDE
     Dosage: 1233 MG/M2, UNK
     Dates: start: 20170620
  19. ABRAXANE [Suspect]
     Active Substance: PACLITAXEL
     Dosage: 151 MG/M2, UNK
     Route: 041
     Dates: start: 20170420
  20. GEMCITABINE HYDROCHLORIDE. [Suspect]
     Active Substance: GEMCITABINE HYDROCHLORIDE
     Dosage: 1511 MG/M2, UNK
     Route: 065
     Dates: start: 20170323, end: 20170620
  21. ABRAXANE [Suspect]
     Active Substance: PACLITAXEL
     Dosage: 151 MG/M2, UNK
     Route: 041
     Dates: start: 20170523
  22. ABRAXANE [Suspect]
     Active Substance: PACLITAXEL
     Dosage: 97 MG/M2, UNK
     Route: 041
     Dates: start: 20170523
  23. GEMCITABINE HYDROCHLORIDE. [Suspect]
     Active Substance: GEMCITABINE HYDROCHLORIDE
     Dosage: 1176 MG/M2, UNK
     Dates: start: 20170620
  24. GEMCITABINE HYDROCHLORIDE. [Suspect]
     Active Substance: GEMCITABINE HYDROCHLORIDE
     Dosage: 1226 MG/M2, UNK
     Dates: start: 20170620
  25. ABRAXANE [Suspect]
     Active Substance: PACLITAXEL
     Indication: PANCREATIC CARCINOMA
     Dosage: 189 MG/M2, UNK
     Route: 041
     Dates: start: 20170323, end: 20170620
  26. NEON [Concomitant]
     Dosage: UNK
  27. NOVALGIN (METAMIZOLE SODIUM) [Concomitant]
     Active Substance: METAMIZOLE SODIUM
     Dosage: 756-500 MILLIGRAM
     Route: 065

REACTIONS (5)
  - Neoplasm progression [Unknown]
  - Thrombocytopenia [Recovered/Resolved]
  - Diarrhoea [Recovered/Resolved]
  - Polyneuropathy [Recovered/Resolved]
  - Liver function test increased [Recovered/Resolved]

NARRATIVE: CASE EVENT DATE: 20170330
